FAERS Safety Report 5698852-0 (Version None)
Quarter: 2008Q2

REPORT INFORMATION
  Report Type: 
  Country: None (occurrence: None)
  Receive Date: 20080408
  Receipt Date: 20060718
  Transmission Date: 20081010
  Serious: No
  Sender: FDA-Public Use
  Company Number: US-BAYER-US-2006-019197

PATIENT
  Age: 57 Year
  Sex: Male
  Weight: 88 kg

DRUGS (2)
  1. ULTRAVIST 300 [Suspect]
     Indication: COMPUTERISED TOMOGRAM
     Dosage: UNIT DOSE: 192 ML
     Route: 042
     Dates: start: 20060714, end: 20060714
  2. ANTIHYPERTENSIVES [Concomitant]

REACTIONS (5)
  - FEELING ABNORMAL [None]
  - FLUSHING [None]
  - NASAL CONGESTION [None]
  - SNEEZING [None]
  - THROAT TIGHTNESS [None]
